FAERS Safety Report 23458066 (Version 1)
Quarter: 2024Q1

REPORT INFORMATION
  Report Type: Spontaneous
  Country: US (occurrence: US)
  Receive Date: 20240130
  Receipt Date: 20240130
  Transmission Date: 20240410
  Serious: No
  Sender: FDA-Public Use
  Company Number: US-FreseniusKabi-FK202401444

PATIENT
  Age: 68 Year
  Sex: Male
  Weight: 88 kg

DRUGS (11)
  1. HEPARIN SODIUM [Suspect]
     Active Substance: HEPARIN SODIUM
     Indication: Anticoagulant therapy
     Dosage: 400 UNITS/KG (35,500 UNITS) GIVEN PRE CPB AT 1844
     Dates: start: 20240110
  2. HEPARIN SODIUM [Suspect]
     Active Substance: HEPARIN SODIUM
     Dosage: ADDITIONAL 10000 UNITS GIVEN AT 1854
     Dates: start: 20240110
  3. HEPARIN SODIUM [Suspect]
     Active Substance: HEPARIN SODIUM
     Dosage: ADDITIONAL 10000 UNITS GIVEN AT 1859
     Dates: start: 20240110
  4. HEPARIN SODIUM [Suspect]
     Active Substance: HEPARIN SODIUM
     Dosage: ADDITIONAL 10000 UNITS GIVEN BY ANESTHESIA PRE CPB AT 1908
     Dates: start: 20240110
  5. HEPARIN SODIUM [Suspect]
     Active Substance: HEPARIN SODIUM
     Dosage: INITIATE CPB AT 1924; ADDITIONAL 10000 UNITS HEPARIN IN CPB PRIME
     Dates: start: 20240110
  6. HEPARIN SODIUM [Suspect]
     Active Substance: HEPARIN SODIUM
     Dosage: ADDITIONAL 10000 UNITS BOLUS GIVEN AT 1928
     Dates: start: 20240110
  7. HEPARIN SODIUM [Suspect]
     Active Substance: HEPARIN SODIUM
     Dosage: ADDITIONAL 10000 UNITS GIVEN
     Dates: start: 20240110
  8. HEPARIN SODIUM [Suspect]
     Active Substance: HEPARIN SODIUM
     Dosage: ADDITIONAL 10000 UNITS GIVEN
     Dates: start: 20240110
  9. HEPARIN SODIUM [Suspect]
     Active Substance: HEPARIN SODIUM
     Dosage: ADDITIONAL 10000 UNITS
     Dates: start: 20240110
  10. ANTITHROMBIN III HUMAN [Concomitant]
     Active Substance: ANTITHROMBIN III HUMAN
     Indication: Product used for unknown indication
     Dosage: 500 UNITS GIVEN BY ANESTHESIA PRE CPB AT 1908
  11. ANTITHROMBIN III HUMAN [Concomitant]
     Active Substance: ANTITHROMBIN III HUMAN
     Dosage: 500 UNITS GIVEN AT 1949

REACTIONS (1)
  - Drug ineffective [Unknown]

NARRATIVE: CASE EVENT DATE: 20240110
